FAERS Safety Report 14094837 (Version 2)
Quarter: 2018Q3

REPORT INFORMATION
  Report Type: Spontaneous
  Country: IT (occurrence: IT)
  Receive Date: 20171016
  Receipt Date: 20180703
  Transmission Date: 20181010
  Serious: Yes (Other)
  Sender: FDA-Public Use
  Company Number: IT-SA-2017SA198770

PATIENT
  Age: 29 Year
  Sex: Female

DRUGS (1)
  1. RIFADIN [Suspect]
     Active Substance: RIFAMPIN
     Dosage: UNK UNK,UNK
     Route: 065

REACTIONS (2)
  - Urticaria [Not Recovered/Not Resolved]
  - Generalised oedema [Not Recovered/Not Resolved]
